FAERS Safety Report 16681757 (Version 1)
Quarter: 2019Q3

REPORT INFORMATION
  Report Type: Spontaneous
  Country: IT (occurrence: IT)
  Receive Date: 20190808
  Receipt Date: 20190808
  Transmission Date: 20191004
  Serious: Yes (Hospitalization)
  Sender: FDA-Public Use
  Company Number: IT-IBIGEN-2019.07006

PATIENT
  Age: 26 Year
  Sex: Female

DRUGS (6)
  1. PIPERACILLINA E TAZOBACTAM IBIGEN 4 G/ 0,5 G POLVERE PER SOLUZIONE PER [Suspect]
     Active Substance: PIPERACILLIN SODIUM\TAZOBACTAM SODIUM
     Indication: BACTERIAL INFECTION
     Route: 042
     Dates: start: 20190712, end: 20190722
  2. CIPRALEX 5 MG COMPRESSE RIVESTITE CON FILM [Concomitant]
     Dosage: ()
  3. TAVOR 2,5 MG COMPRESSE [Concomitant]
     Active Substance: LORAZEPAM
     Dosage: ()
  4. TRANQUIRIT [Concomitant]
     Active Substance: DIAZEPAM
     Dosage: ()
  5. LINEZOLID KABI 2 MG/ML SOLUZIONE PER INFUSIONE [Suspect]
     Active Substance: LINEZOLID
     Indication: BACTERIAL INFECTION
     Route: 042
     Dates: start: 20190712, end: 20190718
  6. LYRICA [Concomitant]
     Active Substance: PREGABALIN
     Dosage: ()

REACTIONS (2)
  - Drug resistance [Not Recovered/Not Resolved]
  - Therapy non-responder [Not Recovered/Not Resolved]

NARRATIVE: CASE EVENT DATE: 20190722
